FAERS Safety Report 10431751 (Version 1)
Quarter: 2014Q3

REPORT INFORMATION
  Report Type: Spontaneous
  Country: DE (occurrence: DE)
  Receive Date: 20140904
  Receipt Date: 20140904
  Transmission Date: 20150326
  Serious: Yes (Other)
  Sender: FDA-Public Use
  Company Number: DE-MYLANLABS-2014M1002835

PATIENT

DRUGS (1)
  1. TAMSULOSIN DURA 0.4 MG [Suspect]
     Active Substance: TAMSULOSIN
     Dosage: 0.4 MG, ONCE IN A DAY
     Route: 048

REACTIONS (2)
  - Urinary retention [Unknown]
  - Micturition disorder [Unknown]
